FAERS Safety Report 4913917-6 (Version None)
Quarter: 2006Q1

REPORT INFORMATION
  Report Type: 
  Country: None (occurrence: None)
  Receive Date: 20060216
  Receipt Date: 20050829
  Transmission Date: 20060701
  Serious: Yes (Other)
  Sender: FDA-Public Use
  Company Number: US-MERCK-0508USA04865

PATIENT
  Age: 58 Year
  Sex: Female
  Weight: 82 kg

DRUGS (4)
  1. VIOXX [Suspect]
     Indication: ARTHRITIS
     Route: 048
  2. WELLBUTRIN [Concomitant]
     Route: 065
  3. TRAZODONE HYDROCHLORIDE [Concomitant]
     Route: 065
  4. PRIMIDONE [Concomitant]
     Route: 065

REACTIONS (6)
  - ARTHROPATHY [None]
  - CEREBROVASCULAR ACCIDENT [None]
  - CONDITION AGGRAVATED [None]
  - DEPRESSION [None]
  - HERNIA [None]
  - INJURY [None]
